FAERS Safety Report 6927454-0 (Version None)
Quarter: 2010Q3

REPORT INFORMATION
  Report Type: 
  Country: None (occurrence: None)
  Receive Date: 20100812
  Receipt Date: 20100802
  Transmission Date: 20110219
  Serious: Yes (Hospitalization)
  Sender: FDA-Public Use
  Company Number: 662498

PATIENT
  Age: 61 Year
  Sex: Female

DRUGS (6)
  1. HYDROMORPHONE HYDROCHLORIDE [Suspect]
     Indication: BACK PAIN
     Dosage: SEE IMAGE
     Route: 037
  2. HYDROMORPHONE HYDROCHLORIDE [Suspect]
     Indication: PAIN IN EXTREMITY
     Dosage: SEE IMAGE
     Route: 037
  3. MORPHINE [Suspect]
     Indication: BACK PAIN
     Dosage: SEE IMAGE
     Route: 037
  4. MORPHINE [Suspect]
     Indication: PAIN IN EXTREMITY
     Dosage: SEE IMAGE
     Route: 037
  5. MORPHINE [Suspect]
     Indication: BACK PAIN
     Dosage: SEE IMAGE
     Route: 037
  6. MORPHINE [Suspect]
     Indication: PAIN IN EXTREMITY
     Dosage: SEE IMAGE
     Route: 037

REACTIONS (3)
  - BACK PAIN [None]
  - CELLULITIS [None]
  - CONDITION AGGRAVATED [None]
